FAERS Safety Report 6192095-2 (Version None)
Quarter: 2009Q2

REPORT INFORMATION
  Report Type: 
  Country: None (occurrence: None)
  Receive Date: 20090515
  Receipt Date: 20090505
  Transmission Date: 20091009
  Serious: Yes (Other)
  Sender: FDA-Public Use
  Company Number: PE-PFIZER INC-2009206780

PATIENT
  Age: 37 Year

DRUGS (3)
  1. ZOLOFT [Suspect]
     Indication: PANIC ATTACK
     Dosage: UNK
     Dates: start: 20081223, end: 20090228
  2. ZOLOFT [Suspect]
     Indication: DEPRESSION
  3. ALPRAZOLAM [Concomitant]
     Indication: PANIC ATTACK
     Dosage: 0.5 MG, UNK
     Dates: start: 20081201, end: 20090201

REACTIONS (3)
  - ARRHYTHMIA [None]
  - DIZZINESS [None]
  - PALPITATIONS [None]
